FAERS Safety Report 10088153 (Version 2)
Quarter: 2014Q2

REPORT INFORMATION
  Report Type: Report from Study
  Country: US (occurrence: US)
  Receive Date: 20140421
  Receipt Date: 20140421
  Transmission Date: 20141212
  Serious: Yes (Life-Threatening, Other)
  Sender: FDA-Public Use
  Company Number: US-ROCHE-1039975

PATIENT
  Age: 59 Year
  Sex: Female

DRUGS (2)
  1. CELLCEPT [Suspect]
     Indication: RENAL TRANSPLANT
     Dosage: NOT REPORTED
     Route: 048
     Dates: start: 20050426, end: 20110801
  2. SIROLIMUS [Concomitant]
     Route: 048
     Dates: start: 20050426

REACTIONS (3)
  - Neoplasm malignant [Unknown]
  - Neoplasm [Recovered/Resolved]
  - Infection [Recovered/Resolved]
